FAERS Safety Report 25026668 (Version 1)
Quarter: 2025Q1

REPORT INFORMATION
  Report Type: Spontaneous
  Country: US (occurrence: US)
  Receive Date: 20250301
  Receipt Date: 20250301
  Transmission Date: 20250409
  Serious: No
  Sender: SANOFI AVENTIS
  Company Number: US-SA-2025SA024420

PATIENT
  Age: 78 Year
  Sex: Female

DRUGS (45)
  1. DUPIXENT [Suspect]
     Active Substance: DUPILUMAB
     Indication: Asthma
     Dosage: 300 MG, QOW
     Route: 058
     Dates: start: 202410, end: 202411
  2. DUPIXENT [Suspect]
     Active Substance: DUPILUMAB
     Indication: Neurodermatitis
  3. Dulcolax [Concomitant]
     Dosage: 1.000DF QD
     Route: 048
  4. MUPIROCIN [Concomitant]
     Active Substance: MUPIROCIN
     Dosage: APPLY SMALL AMOUNT AT BANDAGE CHANGE DAILY
     Route: 061
     Dates: start: 20220413
  5. Trazon [Concomitant]
     Dosage: 1.000DF QD
     Route: 048
  6. VITAMIN B12 [Concomitant]
     Active Substance: CYANOCOBALAMIN
  7. FLAXSEED [Concomitant]
     Active Substance: FLAX SEED
  8. PROAIR HFA [Concomitant]
     Active Substance: ALBUTEROL SULFATE
     Dosage: 1.000DF QD
     Route: 055
  9. ADVAIR HFA [Concomitant]
     Active Substance: FLUTICASONE PROPIONATE\SALMETEROL XINAFOATE
  10. VITAMIN D3 [Concomitant]
     Active Substance: CHOLECALCIFEROL
     Dosage: 1.000DF QD
     Route: 048
  11. METOPROLOL TARTRATE [Concomitant]
     Active Substance: METOPROLOL TARTRATE
     Route: 042
  12. MONTELUKAST [Concomitant]
     Active Substance: MONTELUKAST
     Dosage: 1.000DF QD
     Route: 048
  13. VITAMINS [Concomitant]
     Active Substance: VITAMINS
  14. MIRAPEX [Concomitant]
     Active Substance: PRAMIPEXOLE DIHYDROCHLORIDE
     Dosage: 1.000DF QD
     Route: 048
  15. CEFDINIR [Concomitant]
     Active Substance: CEFDINIR
     Dosage: 1.000DF QD
     Route: 048
  16. HYDROXYZINE HYDROCHLORIDE [Concomitant]
     Active Substance: HYDROXYZINE HYDROCHLORIDE
     Dosage: 1.000DF QD
     Route: 048
  17. CALCIUM [Concomitant]
     Active Substance: CALCIUM
  18. ADVAIR HFA [Concomitant]
     Active Substance: FLUTICASONE PROPIONATE\SALMETEROL XINAFOATE
     Dosage: 1.000DF QD
     Route: 055
  19. NOVOLOG [Concomitant]
     Active Substance: INSULIN ASPART
     Dosage: 1.000DF QD
     Route: 058
  20. CITRUCEL [Concomitant]
     Active Substance: METHYLCELLULOSE (4000 CPS)
     Dosage: 1.000DF QD
     Route: 048
  21. ALLEGRA ALLERGY [Concomitant]
     Active Substance: FEXOFENADINE HYDROCHLORIDE
     Dosage: 1.000DF QD
     Route: 048
  22. CEQUA [Concomitant]
     Active Substance: CYCLOSPORINE
     Dosage: 1.000DF QD
     Route: 047
  23. CEPHALEXIN [Concomitant]
     Active Substance: CEPHALEXIN
     Dosage: TAKE ONE TABLET BY MOUTH THREE TIMES A DAY X 1 WEEK
     Route: 048
     Dates: start: 20230426
  24. PLAVIX [Concomitant]
     Active Substance: CLOPIDOGREL BISULFATE
     Dosage: 1.000DF QD
     Route: 048
  25. TRAMADOL [Concomitant]
     Active Substance: TRAMADOL
     Dosage: 1.000DF BID
     Route: 048
  26. MAGNESIUM [Concomitant]
     Active Substance: MAGNESIUM
  27. OXYCODONE [Concomitant]
     Active Substance: OXYCODONE
     Dosage: 1.000DF QD
     Route: 048
  28. TRULICITY [Concomitant]
     Active Substance: DULAGLUTIDE
     Dosage: 1.000DF QD
     Route: 058
  29. LYRICA [Concomitant]
     Active Substance: PREGABALIN
     Dosage: 1.000DF QD
     Route: 048
  30. LANTUS [Concomitant]
     Active Substance: INSULIN GLARGINE
     Dosage: 1.000DF QD
     Route: 058
  31. TRIAMCINOLONE ACETONIDE [Concomitant]
     Active Substance: TRIAMCINOLONE ACETONIDE
     Route: 061
     Dates: start: 20221129
  32. TRIAMCINOLONE ACETONIDE [Concomitant]
     Active Substance: TRIAMCINOLONE ACETONIDE
     Dosage: APPLY A THIN LAYER TO THUMB NULLS ONCE A DAY WITH AN OCCLUSIVE DRESSING FOR 1 MONTH
     Route: 061
     Dates: start: 20230510
  33. NEXIUM [Concomitant]
     Active Substance: ESOMEPRAZOLE MAGNESIUM
     Dosage: 1.000DF QD
     Route: 048
  34. SAVELLA [Concomitant]
     Active Substance: MILNACIPRAN HYDROCHLORIDE
     Dosage: 1.000DF QD
     Route: 048
  35. AZELASTINE [Concomitant]
     Active Substance: AZELASTINE
     Dosage: 1.000DF QD
     Route: 045
  36. ISOSORBIDE MONONITRATE [Concomitant]
     Active Substance: ISOSORBIDE MONONITRATE
     Dosage: 1.000DF QD
     Route: 048
  37. LEVOTHYROXINE [Concomitant]
     Active Substance: LEVOTHYROXINE
  38. ASPIRIN [Concomitant]
     Active Substance: ASPIRIN
     Dosage: 1.000DF QD
     Route: 048
  39. FLUOROURACIL [Concomitant]
     Active Substance: FLUOROURACIL
     Dosage: APPLY WITH COLCIPOTRIENC CROW TWICE N DAY FOR 4 DAYS TO NOSE, LATERAL CHEEKS, UPPER FOREHEAD AND TEM
     Route: 061
     Dates: start: 20210812
  40. FLUOROURACIL [Concomitant]
     Active Substance: FLUOROURACIL
     Dosage: APPLY TWICE A DAY TO YOUR SCALP FOR 4 WEEK MAX DAILY: 0,2 ML
     Route: 061
     Dates: start: 20240116
  41. HYDROCORTISONE [Concomitant]
     Active Substance: HYDROCORTISONE
     Route: 048
  42. LIPITOR [Concomitant]
     Active Substance: ATORVASTATIN CALCIUM
     Dosage: 1.000DF QD
     Route: 048
  43. TORSEMIDE [Concomitant]
     Active Substance: TORSEMIDE
     Dosage: 1.000DF QD
     Route: 048
  44. LOSARTAN [Concomitant]
     Active Substance: LOSARTAN
     Dosage: 1.000DF QD
     Route: 048
  45. FLUOCINOLONE ACETONIDE [Concomitant]
     Active Substance: FLUOCINOLONE ACETONIDE
     Route: 061
     Dates: start: 20240826

REACTIONS (3)
  - Urticaria [Recovered/Resolved]
  - Erythema [Recovered/Resolved]
  - Rash pruritic [Recovered/Resolved]

NARRATIVE: CASE EVENT DATE: 20241001
